FAERS Safety Report 6573763-7 (Version None)
Quarter: 2010Q1

REPORT INFORMATION
  Report Type: 
  Country: None (occurrence: None)
  Receive Date: 20100208
  Receipt Date: 20100129
  Transmission Date: 20100710
  Serious: Yes (Other)
  Sender: FDA-Public Use
  Company Number: B0631555A

PATIENT
  Sex: Female

DRUGS (2)
  1. HYCAMTIN [Suspect]
     Indication: OVARIAN CANCER
     Dosage: 3MGM2 WEEKLY
     Route: 065
  2. THALIDOMIDE [Suspect]
     Indication: OVARIAN CANCER
     Dosage: 200MG PER DAY
     Route: 065

REACTIONS (3)
  - ANAEMIA [None]
  - HYPOMAGNESAEMIA [None]
  - NEUTROPENIA [None]
